FAERS Safety Report 5689935-X (Version None)
Quarter: 2008Q1

REPORT INFORMATION
  Report Type: 
  Country: None (occurrence: None)
  Receive Date: 20080331
  Receipt Date: 20080331
  Transmission Date: 20080703
  Serious: No
  Sender: FDA-Public Use
  Company Number: None

PATIENT
  Sex: Male
  Weight: 83.9154 kg

DRUGS (2)
  1. LEVAQUIN [Suspect]
     Indication: ASTHMA
     Dosage: 500 MG 1 X DAILY PO
     Route: 048
     Dates: start: 20061212, end: 20061220
  2. LEVAQUIN [Suspect]
     Indication: SINUSITIS
     Dosage: 500 MG 1 X DAILY PO
     Route: 048
     Dates: start: 20061212, end: 20061220

REACTIONS (2)
  - MYALGIA [None]
  - TENDON PAIN [None]
